FAERS Safety Report 6635571-8 (Version None)
Quarter: 2010Q1

REPORT INFORMATION
  Report Type: 
  Country: None (occurrence: None)
  Receive Date: 20100311
  Receipt Date: 20100311
  Transmission Date: 20100710
  Serious: No
  Sender: FDA-Public Use
  Company Number: None

PATIENT
  Age: 16 Year
  Sex: Female
  Weight: 52.1637 kg

DRUGS (4)
  1. TRAMADOL [Suspect]
     Indication: BACK PAIN
  2. VALIUM [Concomitant]
  3. PHENERGAN HCL [Concomitant]
  4. HYDROCODONE [Concomitant]

REACTIONS (3)
  - DISTURBANCE IN ATTENTION [None]
  - DYSKINESIA [None]
  - MOTOR DYSFUNCTION [None]
